FAERS Safety Report 4563999-9 (Version None)
Quarter: 2005Q1

REPORT INFORMATION
  Report Type: 
  Country: None (occurrence: None)
  Receive Date: 20050121
  Receipt Date: 20050106
  Transmission Date: 20050727
  Serious: Yes (Other)
  Sender: FDA-Public Use
  Company Number: B0363854A

PATIENT
  Age: 69 Year
  Sex: Female

DRUGS (4)
  1. COREG [Suspect]
     Indication: HYPERTENSION
  2. FLUOXETINE [Concomitant]
  3. STEROID [Concomitant]
  4. BETA-2 AGONIST [Concomitant]

REACTIONS (5)
  - BLOOD PH INCREASED [None]
  - NEUTROPHILIA [None]
  - NORMOCHROMIC NORMOCYTIC ANAEMIA [None]
  - PNEUMONITIS [None]
  - SERUM FERRITIN INCREASED [None]
